FAERS Safety Report 4504356-0 (Version None)
Quarter: 2004Q4

REPORT INFORMATION
  Report Type: 
  Country: None (occurrence: None)
  Receive Date: 20041109
  Receipt Date: 20041109
  Transmission Date: 20050328
  Serious: Yes (Other)
  Sender: FDA-Public Use
  Company Number: None

PATIENT
  Age: 23 Year
  Sex: Male
  Weight: 84.369 kg

DRUGS (5)
  1. WELLBUTRIN SR [Suspect]
     Indication: DEPRESSION
     Dosage: 150 MGM PO BID
     Route: 048
     Dates: start: 20030304
  2. LITHIUM CARBONATE [Concomitant]
  3. PROLIXIN DECANOATE [Concomitant]
  4. ABILIFY [Concomitant]
  5. BUSPIRONE [Concomitant]

REACTIONS (2)
  - PHARMACEUTICAL PRODUCT COMPLAINT [None]
  - VOMITING [None]
